FAERS Safety Report 19779709 (Version 1)
Quarter: 2021Q3

REPORT INFORMATION
  Report Type: Spontaneous
  Country: US (occurrence: US)
  Receive Date: 20210902
  Receipt Date: 20210902
  Transmission Date: 20211014
  Serious: No
  Sender: FDA-Public Use
  Company Number: US-PUMA BIOTECHNOLOGY, LTD.-2021-PUM-US003834

PATIENT

DRUGS (1)
  1. NERLYNX [Suspect]
     Active Substance: NERATINIB
     Indication: COLON CANCER
     Dosage: 6 TABLETS, DAILY
     Route: 048
     Dates: start: 20210707

REACTIONS (3)
  - Off label use [Unknown]
  - Diarrhoea [Unknown]
  - Colon cancer [Unknown]

NARRATIVE: CASE EVENT DATE: 20210707
